FAERS Safety Report 11396036 (Version 1)
Quarter: 2015Q3

REPORT INFORMATION
  Report Type: Spontaneous
  Country: US (occurrence: None)
  Receive Date: 20150817
  Receipt Date: 20150817
  Transmission Date: 20151125
  Serious: Yes (Hospitalization)
  Sender: FDA-Public Use
  Company Number: None

PATIENT
  Age: 57 Year
  Sex: Male
  Weight: 128.6 kg

DRUGS (2)
  1. VANCOMYCIN [Suspect]
     Active Substance: VANCOMYCIN
     Indication: PANCREATITIS
     Dosage: 1 GM
     Route: 042
     Dates: start: 20120505, end: 20120512
  2. VANCOMYCIN [Suspect]
     Active Substance: VANCOMYCIN
     Indication: INFECTION
     Dosage: 1 GM
     Route: 042
     Dates: start: 20120505, end: 20120512

REACTIONS (3)
  - Drug eruption [None]
  - Rash morbilliform [None]
  - Pyrexia [None]

NARRATIVE: CASE EVENT DATE: 20120512
